FAERS Safety Report 25837766 (Version 1)
Quarter: 2025Q3

REPORT INFORMATION
  Report Type: Spontaneous
  Country: EU (occurrence: EU)
  Receive Date: 20250923
  Receipt Date: 20250923
  Transmission Date: 20251021
  Serious: Yes (Death, Hospitalization, Other)
  Sender: BLUEPRINT MEDICINES
  Company Number: EU-Blueprint Medicines Corporation-2025-AER-02031

PATIENT
  Age: 48 Year
  Sex: Male

DRUGS (2)
  1. AVAPRITINIB [Suspect]
     Active Substance: AVAPRITINIB
     Indication: Indolent systemic mastocytosis
     Route: 065
     Dates: start: 202507
  2. AVAPRITINIB [Suspect]
     Active Substance: AVAPRITINIB
     Route: 065
     Dates: start: 202508

REACTIONS (1)
  - Cardiac arrest [Fatal]

NARRATIVE: CASE EVENT DATE: 20250916
